FAERS Safety Report 8090854-2 (Version None)
Quarter: 2012Q1

REPORT INFORMATION
  Report Type: 
  Country: None (occurrence: None)
  Receive Date: 20120131
  Receipt Date: 20120119
  Transmission Date: 20120608
  Serious: Yes (Life-Threatening, Hospitalization, Other)
  Sender: FDA-Public Use
  Company Number: JP-JNJFOC-20110104025

PATIENT
  Sex: Female
  Weight: 41 kg

DRUGS (13)
  1. REMICADE [Suspect]
     Indication: RHEUMATOID ARTHRITIS
     Route: 042
     Dates: start: 20101015
  2. REMICADE [Suspect]
     Route: 042
     Dates: start: 20101126
  3. METHOTREXATE [Suspect]
     Indication: RHEUMATOID ARTHRITIS
     Route: 048
  4. ONEALFA [Concomitant]
     Dosage: DOSE: 0.5 RG
     Route: 048
  5. REMICADE [Suspect]
     Dosage: 1 INFUSION ON AN UNSPECIFIED DATE
     Route: 042
     Dates: start: 20101029
  6. TOCILIZUMAB [Suspect]
     Indication: RHEUMATOID ARTHRITIS
     Route: 065
     Dates: start: 20081101, end: 20100301
  7. PYDOXAL [Concomitant]
     Route: 048
  8. ALENDRONATE SODIUM [Concomitant]
     Route: 048
  9. PREDNISOLONE [Suspect]
     Indication: PRODUCT USED FOR UNKNOWN INDICATION
     Route: 048
  10. FOLIC ACID [Concomitant]
     Route: 048
  11. FAMOTIDINE [Concomitant]
     Route: 048
  12. REMICADE [Suspect]
     Route: 042
     Dates: start: 20060801, end: 20081101
  13. PALGIN (ETIZOLAM) [Concomitant]
     Route: 048

REACTIONS (7)
  - INTERSTITIAL LUNG DISEASE [None]
  - DRUG INEFFECTIVE [None]
  - ALTERED STATE OF CONSCIOUSNESS [None]
  - DEMENTIA [None]
  - SEPTIC SHOCK [None]
  - INFECTIVE SPONDYLITIS [None]
  - BLOOD PRESSURE INCREASED [None]
